FAERS Safety Report 5892165-X (Version None)
Quarter: 2008Q3

REPORT INFORMATION
  Report Type: 
  Country: None (occurrence: None)
  Receive Date: 20080918
  Receipt Date: 20080909
  Transmission Date: 20090109
  Serious: Yes (Hospitalization)
  Sender: FDA-Public Use
  Company Number: 1-16637201/MED-08172

PATIENT
  Age: 50 Year
  Sex: Male

DRUGS (2)
  1. SULFAMETHOXAZOLE AND TRIMETHOPRIM [Suspect]
     Indication: ARTHROPOD BITE
     Dates: start: 20070701, end: 20070101
  2. CYCLOSPORINE [Concomitant]

REACTIONS (7)
  - BILIRUBIN CONJUGATED INCREASED [None]
  - DERMATITIS EXFOLIATIVE [None]
  - DRUG INTERACTION [None]
  - MALAISE [None]
  - OEDEMA PERIPHERAL [None]
  - PLATELET COUNT DECREASED [None]
  - PSORIASIS [None]
